FAERS Safety Report 4531345-2 (Version None)
Quarter: 2004Q4

REPORT INFORMATION
  Report Type: 
  Country: None (occurrence: None)
  Receive Date: 20041206
  Receipt Date: 20040915
  Transmission Date: 20050328
  Serious: No
  Sender: FDA-Public Use
  Company Number: USA040978308

PATIENT
  Sex: Female

DRUGS (3)
  1. CYMBALTA [Suspect]
     Indication: RELAXATION THERAPY
     Dosage: 60 MG DAY
     Dates: start: 20040905
  2. BELLADONNA EXTRACT [Concomitant]
  3. PHENOBARBITAL [Concomitant]

REACTIONS (3)
  - DRY SKIN [None]
  - NERVOUSNESS [None]
  - PRURITUS [None]
